FAERS Safety Report 5698569-2 (Version None)
Quarter: 2008Q2

REPORT INFORMATION
  Report Type: 
  Country: None (occurrence: None)
  Receive Date: 20080408
  Receipt Date: 20061114
  Transmission Date: 20081010
  Serious: Yes (Hospitalization, Other)
  Sender: FDA-Public Use
  Company Number: US-BAYER-US-2006-028765

PATIENT
  Age: 55 Year
  Sex: Female
  Weight: 63 kg

DRUGS (5)
  1. CLIMARA [Suspect]
     Indication: HORMONE REPLACEMENT THERAPY
     Route: 062
     Dates: start: 19960101, end: 20010101
  2. CLIMARA [Suspect]
     Route: 062
     Dates: start: 20020101
  3. LEVOTHYROXINE SODIUM [Concomitant]
     Indication: THYROID NEOPLASM
     Dosage: UNIT DOSE: 0.05 MG
     Route: 048
  4. ATENOLOL [Concomitant]
     Indication: MITRAL VALVE PROLAPSE
     Dosage: UNIT DOSE: 25 MG
     Route: 048
  5. LIPITOR [Concomitant]
     Indication: BLOOD CHOLESTEROL INCREASED

REACTIONS (4)
  - HOT FLUSH [None]
  - HYPERHIDROSIS [None]
  - MIDDLE INSOMNIA [None]
  - RETINOPEXY [None]
